FAERS Safety Report 21821493 (Version 1)
Quarter: 2023Q1

REPORT INFORMATION
  Report Type: Spontaneous
  Country: IN (occurrence: None)
  Receive Date: 20230105
  Receipt Date: 20230105
  Transmission Date: 20230417
  Serious: Yes (Other)
  Sender: FDA-Public Use
  Company Number: IN-MICRO LABS LIMITED-ML2023-00025

PATIENT
  Sex: Male

DRUGS (2)
  1. AMOXICILLIN\CLAVULANIC ACID [Suspect]
     Active Substance: AMOXICILLIN\CLAVULANIC ACID
     Indication: Infection prophylaxis
     Dosage: ORAL ANTIBIOTIC PROPHYLAXIS RECEIVED 1.250GM OF ACA THROUGH ORAL ROUTE
     Route: 048
  2. AMOXICILLIN\CLAVULANIC ACID [Suspect]
     Active Substance: AMOXICILLIN\CLAVULANIC ACID
     Dosage: SINGLE I.V BOLUS INJECTION OF 1.2GM ACA (1GM AMOXICILLIN +200MG CLAVULANIC ACID) IN 20ML OF STERILE
     Route: 042

REACTIONS (1)
  - Drug ineffective [Unknown]
